FAERS Safety Report 16711617 (Version 3)
Quarter: 2019Q3

REPORT INFORMATION
  Report Type: Spontaneous
  Country: US (occurrence: US)
  Receive Date: 20190816
  Receipt Date: 20190920
  Transmission Date: 20191004
  Serious: No
  Sender: FDA-Public Use
  Company Number: US-SA-2019SA221453

PATIENT
  Age: 79 Year
  Sex: Male

DRUGS (19)
  1. PRALUENT [Suspect]
     Active Substance: ALIROCUMAB
     Indication: ESSENTIAL HYPERTENSION
     Dosage: 75 MG, QOW
     Route: 058
     Dates: start: 20181023, end: 201908
  2. ALBUTEROL HFA [Concomitant]
     Active Substance: ALBUTEROL SULFATE
     Indication: WHEEZING
     Dosage: UNK UNK, Q6H
     Route: 055
  3. ANTIVERT [Concomitant]
     Active Substance: MECLIZINE HYDROCHLORIDE
     Dosage: UNK UNK, PRN
     Route: 048
  4. CIALIS [Concomitant]
     Active Substance: TADALAFIL
     Dosage: UNK UNK, PRN
     Route: 048
  5. VENTOLIN HFA [Concomitant]
     Active Substance: ALBUTEROL SULFATE
     Indication: WHEEZING
     Dosage: UNK UNK, Q6H
     Route: 055
  6. VITAMIN D3 [Concomitant]
     Active Substance: CHOLECALCIFEROL
     Dosage: 3000 U
     Route: 048
  7. POTASSIUM GLUCONATE [Concomitant]
     Active Substance: POTASSIUM GLUCONATE
     Dosage: 1 DF, QD
     Route: 048
  8. PRALUENT [Suspect]
     Active Substance: ALIROCUMAB
     Indication: BLOOD CHOLESTEROL
  9. LIDEX [Concomitant]
     Active Substance: FLUOCINONIDE
     Dosage: UNK UNK, BID
     Route: 061
  10. HYZAAR [Concomitant]
     Active Substance: HYDROCHLOROTHIAZIDE\LOSARTAN POTASSIUM
     Dosage: UNK UNK, QD
     Route: 048
  11. PRILOSEC [Concomitant]
     Active Substance: OMEPRAZOLE MAGNESIUM
     Dosage: UNK UNK, QD
     Route: 048
  12. SENOKOT [Concomitant]
     Active Substance: SENNOSIDES
     Dosage: 1 DF, QD
     Route: 048
  13. MULTIVITAMINS;MINERALS [Concomitant]
     Dosage: UNK UNK, QD
     Route: 048
  14. FISH OIL;OMEGA-3 FATTY ACIDS [Concomitant]
     Active Substance: FISH OIL\OMEGA-3 FATTY ACIDS
     Dosage: UNK UNK, BID
     Route: 048
  15. PROVENTIL HFA [SALBUTAMOL] [Concomitant]
     Indication: WHEEZING
     Dosage: UNK UNK, Q6H
     Route: 055
  16. CELEXA [Concomitant]
     Active Substance: CITALOPRAM HYDROBROMIDE
     Dosage: 20 MG, QD
     Route: 048
  17. NASALIDE [Concomitant]
     Active Substance: FLUNISOLIDE
     Dosage: UNK UNK, BID
     Route: 045
  18. PRESERVISION AREDS 2 [Concomitant]
     Active Substance: MINERALS\VITAMINS
     Route: 048
  19. NITROSTAT [Concomitant]
     Active Substance: NITROGLYCERIN
     Indication: CHEST PAIN
     Dosage: UNK UNK, PRN
     Route: 060

REACTIONS (5)
  - Nasal congestion [Unknown]
  - Unevaluable event [Unknown]
  - Blood triglycerides increased [Unknown]
  - Nasopharyngitis [Unknown]
  - Oropharyngeal pain [Unknown]

NARRATIVE: CASE EVENT DATE: 201908
